FAERS Safety Report 14694666 (Version 2)
Quarter: 2018Q2

REPORT INFORMATION
  Report Type: Spontaneous
  Country: US (occurrence: US)
  Receive Date: 20180329
  Receipt Date: 20180402
  Transmission Date: 20180711
  Serious: Yes (Hospitalization, Other)
  Sender: FDA-Public Use
  Company Number: US-PFIZER INC-2018129481

PATIENT
  Age: 57 Year
  Sex: Female
  Weight: 153 kg

DRUGS (2)
  1. DAPTOMYCIN. [Suspect]
     Active Substance: DAPTOMYCIN
     Dosage: UNK (500MG/100CC NORMAL SALINE SOLUTION INFUSED INTRAVENOUSLY OVER 30 MINUTES X 1 DOSE)
     Route: 042
     Dates: start: 20180327, end: 20180327
  2. DAPTOMYCIN. [Suspect]
     Active Substance: DAPTOMYCIN
     Indication: OSTEOMYELITIS
     Dosage: 500 MG, 1X/DAY, OVER 10 MINUTES
     Route: 040
     Dates: start: 20180309, end: 20180324

REACTIONS (3)
  - Chills [Recovered/Resolved]
  - Tremor [Recovering/Resolving]
  - Chills [Recovering/Resolving]

NARRATIVE: CASE EVENT DATE: 20180323
